FAERS Safety Report 18594821 (Version 1)
Quarter: 2020Q4

REPORT INFORMATION
  Report Type: Spontaneous
  Country: US (occurrence: US)
  Receive Date: 20201208
  Receipt Date: 20201208
  Transmission Date: 20210114
  Serious: Yes (Death, Hospitalization)
  Sender: FDA-Public Use
  Company Number: None

PATIENT
  Age: 60 Year
  Sex: Male
  Weight: 82.5 kg

DRUGS (3)
  1. GEMCITABINE HYDROCHLORIDE. [Suspect]
     Active Substance: GEMCITABINE HYDROCHLORIDE
     Dates: end: 20201130
  2. PACLITAXEL PROTEIN-BOUND PARTICLES (ALBUMIN-BOUND) [Suspect]
     Active Substance: PACLITAXEL
     Dates: end: 20201130
  3. CISPLATIN. [Suspect]
     Active Substance: CISPLATIN
     Dates: end: 20201130

REACTIONS (25)
  - Pyrexia [None]
  - Atrial fibrillation [None]
  - Sepsis [None]
  - Acute myocardial infarction [None]
  - Atrial flutter [None]
  - Vomiting [None]
  - Septic shock [None]
  - Pulse absent [None]
  - Livedo reticularis [None]
  - Cyanosis [None]
  - Intestinal ischaemia [None]
  - Metabolic disorder [None]
  - Bacteraemia [None]
  - Respiratory arrest [None]
  - Tachycardia [None]
  - Nausea [None]
  - Dehydration [None]
  - Troponin increased [None]
  - Cardiac arrest [None]
  - Bradycardia [None]
  - Pallor [None]
  - Diarrhoea [None]
  - Hypophagia [None]
  - Respiratory distress [None]
  - Hypoperfusion [None]

NARRATIVE: CASE EVENT DATE: 20201203
